FAERS Safety Report 9907572 (Version 2)
Quarter: 2014Q1

REPORT INFORMATION
  Report Type: Report from Study
  Country: US (occurrence: US)
  Receive Date: 20140218
  Receipt Date: 20140219
  Transmission Date: 20141002
  Serious: Yes (Other)
  Sender: FDA-Public Use
  Company Number: US-ROCHE-1349699

PATIENT
  Sex: Female

DRUGS (10)
  1. LUCENTIS [Suspect]
     Indication: RETINAL VEIN OCCLUSION
     Route: 065
     Dates: start: 20140206
  2. LIPITOR [Concomitant]
  3. DIOVAN [Concomitant]
  4. CARVEDILOL [Concomitant]
  5. LASIX [Concomitant]
  6. CLONIDINE [Concomitant]
     Indication: BLOOD PRESSURE
     Dosage: PRN BLOOD PRESSURE ABOVE 160
     Route: 065
  7. AMLODIPINE [Concomitant]
  8. MOBIC [Concomitant]
     Route: 065
  9. LANTUS [Concomitant]
  10. NOVOLOG [Concomitant]

REACTIONS (1)
  - Stent malfunction [Unknown]
